FAERS Safety Report 8590829-0 (Version None)
Quarter: 2012Q3

REPORT INFORMATION
  Report Type: 
  Country: None (occurrence: None)
  Receive Date: 20120813
  Receipt Date: 20120806
  Transmission Date: 20120928
  Serious: Yes (Hospitalization, Other)
  Sender: FDA-Public Use
  Company Number: US-ROCHE-752250

PATIENT
  Sex: Male
  Weight: 90.7 kg

DRUGS (2)
  1. ACCUTANE [Suspect]
     Indication: ACNE CYSTIC
     Route: 065
     Dates: start: 19950101, end: 19951201
  2. ACCUTANE [Suspect]
     Route: 048
     Dates: start: 19971227, end: 19980601

REACTIONS (9)
  - CROHN'S DISEASE [None]
  - DERMATITIS [None]
  - GASTROINTESTINAL DISORDER [None]
  - ABDOMINAL PAIN [None]
  - DEPRESSION [None]
  - FISTULA [None]
  - BLOOD TRIGLYCERIDES INCREASED [None]
  - RECTAL HAEMORRHAGE [None]
  - INFLAMMATORY BOWEL DISEASE [None]
